FAERS Safety Report 16346457 (Version 1)
Quarter: 2020Q3

REPORT INFORMATION
  Report Type: Spontaneous
  Country: DE (occurrence: DE)
  Receive Date: 20190523
  Receipt Date: 20190523
  Transmission Date: 20201104
  Serious: Yes (Other)
  Sender: FDA-Public Use
  Company Number: DE-ROCHE-2322789

PATIENT
  Sex: Female

DRUGS (4)
  1. NEBILET [Concomitant]
     Active Substance: NEBIVOLOL
     Indication: HYPERTENSION
     Dosage: 2 X 5 MG DAILY (1 IN 1 D)
     Route: 048
  2. IBANDRONIC ACID. [Suspect]
     Active Substance: IBANDRONIC ACID
     Indication: OSTEOPOROSIS
     Dosage: ON 21/JUN/2018, SHE ADMINISTERED THE SECOND INJECTION OF IBANDRONIC ACID.
     Route: 042
     Dates: start: 201803
  3. IDEOS [Concomitant]
     Active Substance: CALCIUM CARBONATE\CHOLECALCIFEROL
     Indication: ADJUVANT THERAPY
     Dosage: STRENGTH: 500 MG/400 IU
     Route: 048
  4. DEKRISTOL [Concomitant]
     Active Substance: CHOLECALCIFEROL
     Indication: ADJUVANT THERAPY
     Route: 048

REACTIONS (2)
  - Influenza like illness [Unknown]
  - Arrhythmia [Unknown]

NARRATIVE: CASE EVENT DATE: 201803
